FAERS Safety Report 13450795 (Version 1)
Quarter: 2017Q2

REPORT INFORMATION
  Report Type: Spontaneous
  Country: US (occurrence: US)
  Receive Date: 20170418
  Receipt Date: 20170418
  Transmission Date: 20170830
  Serious: Yes (Death)
  Sender: FDA-Public Use
  Company Number: US-ENDO PHARMACEUTICALS INC-2017-001801

PATIENT
  Age: 79 Year
  Sex: Male

DRUGS (1)
  1. AMANTADINE HCL [Suspect]
     Active Substance: AMANTADINE HYDROCHLORIDE
     Indication: PRODUCT USED FOR UNKNOWN INDICATION
     Dosage: UNK UNK, UNKNOWN
     Route: 048

REACTIONS (1)
  - Medication error [Fatal]
